FAERS Safety Report 19709678 (Version 1)
Quarter: 2021Q3

REPORT INFORMATION
  Report Type: Spontaneous
  Country: GB (occurrence: GB)
  Receive Date: 20210817
  Receipt Date: 20210817
  Transmission Date: 20211014
  Serious: Yes (Other)
  Sender: FDA-Public Use
  Company Number: GB-PFIZER INC-202101022801

PATIENT
  Age: 64 Year
  Sex: Male

DRUGS (8)
  1. COLCHICINE. [Interacting]
     Active Substance: COLCHICINE
     Indication: GOUT
     Dosage: 1.0 MG
  2. CICLOSPORIN [Suspect]
     Active Substance: CYCLOSPORINE
     Indication: GOUT
     Dosage: UNK
  3. ATORVASTATIN CALCIUM. [Suspect]
     Active Substance: ATORVASTATIN CALCIUM
     Indication: GOUT
     Dosage: UNK
  4. PREDNISOLONE. [Suspect]
     Active Substance: PREDNISOLONE
     Indication: GOUT
     Dosage: UNK
  5. THYROXINE [Suspect]
     Active Substance: LEVOTHYROXINE
     Indication: GOUT
     Dosage: UNK
  6. INSULIN [Suspect]
     Active Substance: INSULIN NOS
     Indication: GOUT
     Dosage: UNK
  7. MYCOPHENOLATE MOFETIL. [Suspect]
     Active Substance: MYCOPHENOLATE MOFETIL
     Indication: GOUT
     Dosage: UNK
  8. ASPIRIN [ACETYLSALICYLIC ACID] [Suspect]
     Active Substance: ASPIRIN
     Indication: GOUT
     Dosage: UNK

REACTIONS (3)
  - Off label use [Unknown]
  - Rhabdomyolysis [Unknown]
  - Drug interaction [Unknown]
